FAERS Safety Report 20885187 (Version 4)
Quarter: 2022Q2

REPORT INFORMATION
  Report Type: Spontaneous
  Country: CN (occurrence: CN)
  Receive Date: 20220527
  Receipt Date: 20220628
  Transmission Date: 20220721
  Serious: Yes (Life-Threatening, Hospitalization, Other)
  Sender: FDA-Public Use
  Company Number: CN-GILEAD-2022-0583271

PATIENT
  Age: 36 Year
  Sex: Female

DRUGS (4)
  1. YESCARTA [Suspect]
     Active Substance: AXICABTAGENE CILOLEUCEL
     Indication: Diffuse large B-cell lymphoma
     Dosage: UNK
     Route: 042
     Dates: start: 20220115
  2. YESCARTA [Suspect]
     Active Substance: AXICABTAGENE CILOLEUCEL
     Indication: Diffuse large B-cell lymphoma
  3. CEFOPERAZONE SODIUM\SULBACTAM SODIUM [Concomitant]
     Active Substance: CEFOPERAZONE SODIUM\SULBACTAM SODIUM
  4. VANCOMYCIN [Concomitant]
     Active Substance: VANCOMYCIN

REACTIONS (8)
  - Neurotoxicity [Not Recovered/Not Resolved]
  - Cytokine release syndrome [Not Recovered/Not Resolved]
  - Myelosuppression [Not Recovered/Not Resolved]
  - Hyperkalaemia [Unknown]
  - Procalcitonin increased [Unknown]
  - Dysphoria [Recovering/Resolving]
  - Chest discomfort [Recovering/Resolving]
  - Dyspnoea [Recovering/Resolving]

NARRATIVE: CASE EVENT DATE: 20220116
